FAERS Safety Report 4764221-0 (Version None)
Quarter: 2005Q3

REPORT INFORMATION
  Report Type: 
  Country: None (occurrence: None)
  Receive Date: 20050906
  Receipt Date: 20050511
  Transmission Date: 20060218
  Serious: No
  Sender: FDA-Public Use
  Company Number: 2005-BP-07856BP

PATIENT
  Age: 58 Year
  Sex: Male

DRUGS (8)
  1. SPIRIVA [Suspect]
     Indication: CHRONIC OBSTRUCTIVE PULMONARY DISEASE
     Dosage: 18 MCG (18 MCG, QD) IH
     Route: 055
     Dates: start: 20040602
  2. SPIRIVA [Suspect]
  3. ADVAIR DISKUS 100/50 [Concomitant]
  4. ALBUTEROL [Concomitant]
  5. THEOPHYLLINE [Concomitant]
  6. PREDNISONE [Concomitant]
  7. FOSAMAX [Concomitant]
  8. CALTRATE (CALCIUM CARBONATE) [Concomitant]

REACTIONS (2)
  - PRURITUS [None]
  - RASH [None]
